FAERS Safety Report 13926112 (Version 4)
Quarter: 2018Q3

REPORT INFORMATION
  Report Type: Spontaneous
  Country: US (occurrence: US)
  Receive Date: 20170831
  Receipt Date: 20180720
  Transmission Date: 20181010
  Serious: Yes (Hospitalization)
  Sender: FDA-Public Use
  Company Number: US-ACTELION-A-NJ2017-158879

PATIENT
  Age: 50 Year
  Sex: Female
  Weight: 65.76 kg

DRUGS (5)
  1. VENTAVIS [Suspect]
     Active Substance: ILOPROST
     Indication: PULMONARY ARTERIAL HYPERTENSION
     Dosage: 5 MCG, 6?9X/DAY
     Route: 055
  2. ADCIRCA [Concomitant]
     Active Substance: TADALAFIL
  3. VENTAVIS [Suspect]
     Active Substance: ILOPROST
     Dosage: 5 MCG, 6X/DAY
     Route: 055
  4. TRACLEER [Concomitant]
     Active Substance: BOSENTAN
     Indication: PULMONARY ARTERIAL HYPERTENSION
     Dosage: UNK
     Route: 048
  5. WARFARIN [Concomitant]
     Active Substance: WARFARIN

REACTIONS (7)
  - Sternal fracture [Unknown]
  - Syncope [Unknown]
  - Fall [Unknown]
  - Dyspnoea [Unknown]
  - Drug dose omission [Unknown]
  - Limb injury [Unknown]
  - Hypotension [Unknown]

NARRATIVE: CASE EVENT DATE: 20180408
